FAERS Safety Report 4786875-5 (Version None)
Quarter: 2005Q3

REPORT INFORMATION
  Report Type: 
  Country: None (occurrence: None)
  Receive Date: 20050930
  Receipt Date: 20050930
  Transmission Date: 20060218
  Serious: No
  Sender: FDA-Public Use
  Company Number: None

PATIENT
  Sex: Female

DRUGS (1)
  1. BUSPIRONE HCL [Suspect]
     Indication: MAJOR DEPRESSION
     Dosage: 30 MG PO TID
     Route: 048
     Dates: start: 20010301

REACTIONS (3)
  - BULIMIA NERVOSA [None]
  - PARANOIA [None]
  - PSYCHOTIC DISORDER [None]
